FAERS Safety Report 8183905-8 (Version None)
Quarter: 2012Q1

REPORT INFORMATION
  Report Type: 
  Country: None (occurrence: None)
  Receive Date: 20120305
  Receipt Date: 20120301
  Transmission Date: 20120608
  Serious: Yes (Other)
  Sender: FDA-Public Use
  Company Number: US-PFIZER INC-2012055972

PATIENT
  Sex: Male
  Weight: 111 kg

DRUGS (5)
  1. COZAAR [Concomitant]
     Indication: HYPERTENSION
     Dosage: UNK
  2. GLIMEPIRIDE [Concomitant]
     Indication: DIABETES MELLITUS
     Dosage: UNK
  3. JANUVIA [Concomitant]
     Indication: DIABETES MELLITUS
     Dosage: UNK
  4. HYDROCODONE [Concomitant]
     Dosage: UNK
  5. NEURONTIN [Suspect]
     Indication: JOINT INJURY
     Dosage: 400 MG, 3X/DAY
     Route: 048
     Dates: start: 20090101

REACTIONS (1)
  - BACK INJURY [None]
